FAERS Safety Report 9838190 (Version 1)
Quarter: 2014Q1

REPORT INFORMATION
  Report Type: Spontaneous
  Country: CH (occurrence: CH)
  Receive Date: 20140123
  Receipt Date: 20140123
  Transmission Date: 20141002
  Serious: Yes (Other)
  Sender: FDA-Public Use
  Company Number: CH-ASTRAZENECA-2014SE03589

PATIENT
  Age: 31 Year
  Sex: Male

DRUGS (4)
  1. QUETIAPIN [Suspect]
     Indication: BIPOLAR DISORDER
     Dosage: 300 MG, 1 PER 1 AS NECESSARY (AS RESERVE MEDICATION)
     Route: 048
     Dates: start: 20131223, end: 20131223
  2. RISPERIDONE [Suspect]
     Route: 048
  3. TEMESTA [Suspect]
     Dosage: 1 DF, 1 PER 1 AS NECESSARY (IN RESERVE)
     Route: 048
  4. DEPAKINE [Concomitant]

REACTIONS (6)
  - Overdose [Recovered/Resolved]
  - Muscular weakness [Unknown]
  - Neuroleptic malignant syndrome [Recovering/Resolving]
  - Dysarthria [Recovered/Resolved]
  - Blood creatine phosphokinase increased [Unknown]
  - Sinus tachycardia [Unknown]
